FAERS Safety Report 16930608 (Version 1)
Quarter: 2019Q4

REPORT INFORMATION
  Report Type: Spontaneous
  Country: US (occurrence: US)
  Receive Date: 20191017
  Receipt Date: 20191017
  Transmission Date: 20200122
  Serious: No
  Sender: FDA-Public Use
  Company Number: US-INCYTE CORPORATION-2019IN010063

PATIENT

DRUGS (1)
  1. JAKAFI [Suspect]
     Active Substance: RUXOLITINIB
     Dosage: 5 MG, 1 TAB EVERY AM, 2 TABS Q EVENING
     Route: 048
     Dates: start: 20190423

REACTIONS (2)
  - Memory impairment [Recovered/Resolved]
  - Product dose omission [Unknown]
